FAERS Safety Report 24828385 (Version 2)
Quarter: 2025Q1

REPORT INFORMATION
  Report Type: Spontaneous
  Country: TR (occurrence: TR)
  Receive Date: 20250109
  Receipt Date: 20250327
  Transmission Date: 20250409
  Serious: Yes (Other)
  Sender: NOVO NORDISK
  Company Number: TR-NOVOPROD-1333754

PATIENT
  Age: 599 Month
  Sex: Female
  Weight: 107 kg

DRUGS (3)
  1. SAXENDA [Suspect]
     Active Substance: LIRAGLUTIDE
  2. SAXENDA [Suspect]
     Active Substance: LIRAGLUTIDE
     Indication: Product used for unknown indication
  3. SAXENDA [Suspect]
     Active Substance: LIRAGLUTIDE

REACTIONS (5)
  - Varicose vein [Unknown]
  - Insulin resistance [Unknown]
  - Weight increased [Unknown]
  - Weight loss poor [Unknown]
  - Drug ineffective [Unknown]

NARRATIVE: CASE EVENT DATE: 20241128
